FAERS Safety Report 9641122 (Version 1)
Quarter: 2013Q4

REPORT INFORMATION
  Report Type: Report from Study
  Country: US (occurrence: US)
  Receive Date: 20131023
  Receipt Date: 20131023
  Transmission Date: 20140711
  Serious: Yes (Hospitalization, Other)
  Sender: FDA-Public Use
  Company Number: US-ASTELLAS-2013US010838

PATIENT
  Age: 67 Year
  Sex: Male
  Weight: 74 kg

DRUGS (2)
  1. ERLOTINIB TABLET [Suspect]
     Indication: ADENOCARCINOMA PANCREAS
     Dosage: 100 MG, UID/QD
     Route: 048
     Dates: start: 20130604, end: 20130930
  2. GEMCITABINE [Suspect]
     Indication: ADENOCARCINOMA PANCREAS
     Dosage: 1000 MG/M2, WEEKLY FOR WKS 1-3
     Route: 042
     Dates: start: 20130604, end: 20130916

REACTIONS (12)
  - Failure to thrive [Unknown]
  - Left ventricular dysfunction [Unknown]
  - Vasculitis [Unknown]
  - Haemoglobin decreased [Unknown]
  - Pleural effusion [Unknown]
  - Atelectasis [Unknown]
  - Skin ulcer [Unknown]
  - Tachycardia [Unknown]
  - Dyspnoea [Unknown]
  - Pyrexia [Unknown]
  - Rash papular [Unknown]
  - Pain in extremity [Unknown]
